FAERS Safety Report 13248083 (Version 7)
Quarter: 2018Q3

REPORT INFORMATION
  Report Type: Spontaneous
  Country: US (occurrence: US)
  Receive Date: 20170217
  Receipt Date: 20180823
  Transmission Date: 20181010
  Serious: Yes (Death, Life-Threatening, Hospitalization, Other)
  Sender: FDA-Public Use
  Company Number: US-ACTELION-A-US2017-149905

PATIENT
  Age: 60 Year
  Sex: Female

DRUGS (12)
  1. FUROSEMIDE. [Concomitant]
     Active Substance: FUROSEMIDE
     Dosage: 40 MG, QD
     Route: 048
  2. CISPLATIN. [Suspect]
     Active Substance: CISPLATIN
     Indication: CHEMOTHERAPY
     Dosage: 63.2 MG, UNK
     Route: 042
     Dates: start: 20170106
  3. HYDROCODONE BITARTRATE AND ACETAMINOPHEN [Concomitant]
     Active Substance: ACETAMINOPHEN\HYDROCODONE BITARTRATE
     Dosage: 7.5/15ML, Q6H PRN
     Route: 048
  4. DEXAMETHASONE. [Concomitant]
     Active Substance: DEXAMETHASONE
     Dosage: 36 MG (12 MG, 3 TABS)
     Dates: start: 20170106
  5. LASIX [Concomitant]
     Active Substance: FUROSEMIDE
     Dosage: UNK
     Dates: start: 20170131
  6. CITALOPRAM [Concomitant]
     Active Substance: CITALOPRAM HYDROBROMIDE
     Dosage: 40 MG, QD
     Route: 048
  7. ONDANSETRON [Concomitant]
     Active Substance: ONDANSETRON
     Dosage: 8 MG, BID, PRN
     Route: 048
  8. TRACLEER [Suspect]
     Active Substance: BOSENTAN
     Indication: PULMONARY ARTERIAL HYPERTENSION
     Dosage: 125 MG, BID
     Route: 048
     Dates: start: 200501, end: 20180615
  9. SILDENAFIL. [Suspect]
     Active Substance: SILDENAFIL
     Indication: PULMONARY ARTERIAL HYPERTENSION
     Dosage: 20 MG, TID
     Route: 048
     Dates: start: 2006, end: 20180616
  10. NADOLOL. [Concomitant]
     Active Substance: NADOLOL
     Dosage: 10 MG, QOD
     Route: 048
  11. OLANZAPINE. [Concomitant]
     Active Substance: OLANZAPINE
     Dosage: 5 MG, QPM AFTER CHEMO
     Route: 048
  12. PROCHLORPERAZINE. [Concomitant]
     Active Substance: PROCHLORPERAZINE
     Indication: NAUSEA
     Dosage: 10 MG, Q8H, PRN
     Route: 048

REACTIONS (31)
  - Hypotension [Recovered/Resolved]
  - Cough [Recovering/Resolving]
  - Loss of consciousness [Unknown]
  - Acute respiratory failure [Recovering/Resolving]
  - Lethargy [Recovering/Resolving]
  - Melaena [Unknown]
  - Fatigue [Unknown]
  - Faeces discoloured [Unknown]
  - Diarrhoea [Unknown]
  - Odynophagia [Unknown]
  - Pulseless electrical activity [Fatal]
  - Asthenia [Recovered/Resolved]
  - Pneumonia [Recovering/Resolving]
  - Pulmonary hypertension [Recovering/Resolving]
  - Cardiac failure congestive [Recovering/Resolving]
  - Gait disturbance [Unknown]
  - Chest injury [Unknown]
  - Chest pain [Unknown]
  - Painful respiration [Unknown]
  - Renal failure [Recovering/Resolving]
  - Dehydration [Unknown]
  - Fluid overload [Recovering/Resolving]
  - Chronic obstructive pulmonary disease [Recovering/Resolving]
  - Dyspnoea [Recovering/Resolving]
  - Dizziness postural [Unknown]
  - Hyponatraemia [Unknown]
  - Cardiac arrest [Fatal]
  - Cardiac failure [Recovering/Resolving]
  - Fall [Unknown]
  - Arthralgia [Unknown]
  - Anaemia [Unknown]

NARRATIVE: CASE EVENT DATE: 20170103
